FAERS Safety Report 8224238-0 (Version None)
Quarter: 2012Q1

REPORT INFORMATION
  Report Type: 
  Country: None (occurrence: None)
  Receive Date: 20120321
  Receipt Date: 20120314
  Transmission Date: 20120608
  Serious: Yes (Other)
  Sender: FDA-Public Use
  Company Number: US-BAYER-2011-098104

PATIENT
  Age: 29 Year
  Sex: Female
  Weight: 95.238 kg

DRUGS (10)
  1. NYQUIL [Concomitant]
     Indication: NASOPHARYNGITIS
  2. YASMIN [Suspect]
     Indication: MENSTRUATION IRREGULAR
     Dosage: UNK
     Dates: start: 20030101, end: 20030624
  3. YASMIN [Suspect]
     Dosage: UNK
     Dates: start: 20080913, end: 20081012
  4. GUAIFENESIN [Concomitant]
     Indication: NASOPHARYNGITIS
  5. DROSPIRENONE AND ETHINYL ESTRADIOL [Suspect]
     Indication: MENSTRUATION IRREGULAR
     Dosage: UNK
     Dates: start: 20081012, end: 20100801
  6. YAZ [Suspect]
     Indication: MENSTRUATION IRREGULAR
     Dosage: UNK
     Dates: start: 20070521, end: 20070620
  7. DAYQUIL [Concomitant]
     Indication: NASOPHARYNGITIS
  8. IBUPROFEN (ADVIL) [Concomitant]
     Indication: MYALGIA
     Dosage: 200 MG, PRN
  9. YASMIN [Suspect]
     Dosage: UNK
     Dates: start: 20070620, end: 20071211
  10. TYLENOL [Concomitant]
     Indication: HEADACHE
     Dosage: 200 MG, PRN

REACTIONS (5)
  - PAIN [None]
  - CHOLECYSTITIS [None]
  - INJURY [None]
  - CHOLECYSTITIS ACUTE [None]
  - ABDOMINAL PAIN UPPER [None]
